FAERS Safety Report 5165608-7 (Version None)
Quarter: 2006Q4

REPORT INFORMATION
  Report Type: 
  Country: None (occurrence: None)
  Receive Date: 20061206
  Receipt Date: 20060912
  Transmission Date: 20070319
  Serious: Yes (Hospitalization)
  Sender: FDA-Public Use
  Company Number: AR-BRISTOL-MYERS SQUIBB COMPANY-13507728

PATIENT
  Age: 49 Year
  Sex: Female

DRUGS (6)
  1. ABATACEPT [Suspect]
     Indication: RHEUMATOID ARTHRITIS
     Route: 042
     Dates: start: 20040330
  2. METHOTREXATE [Suspect]
     Indication: RHEUMATOID ARTHRITIS
     Route: 048
     Dates: start: 20040526
  3. ENALAPRIL MALEATE [Concomitant]
     Dates: start: 19990722
  4. FOLIC ACID [Concomitant]
     Dates: start: 19961119
  5. AMLODIPINE [Concomitant]
     Dates: start: 19991202
  6. NIMESULIDE [Concomitant]
     Dates: start: 20021101

REACTIONS (1)
  - OSTEOMYELITIS ACUTE [None]
